FAERS Safety Report 19128650 (Version 1)
Quarter: 2021Q2

REPORT INFORMATION
  Report Type: Spontaneous
  Country: US (occurrence: US)
  Receive Date: 20210413
  Receipt Date: 20210413
  Transmission Date: 20210717
  Serious: No
  Sender: FDA-Public Use
  Company Number: US-ALLERGAN-2026115US

PATIENT
  Age: 70 Year
  Sex: Female

DRUGS (2)
  1. LUMIGAN [Suspect]
     Active Substance: BIMATOPROST
     Indication: GLAUCOMA
     Dosage: 2 GTT, QHS
     Route: 047
  2. LUMIGAN [Suspect]
     Active Substance: BIMATOPROST
     Dosage: 2 GTT, QHS
     Route: 047
     Dates: start: 201806

REACTIONS (11)
  - Pyrexia [Recovered/Resolved]
  - Oropharyngeal pain [Recovered/Resolved]
  - Bladder prolapse [Not Recovered/Not Resolved]
  - Dyspnoea [Recovered/Resolved]
  - Malaise [Unknown]
  - Dry eye [Recovered/Resolved]
  - Erythema [Unknown]
  - Cystitis [Recovered/Resolved]
  - Headache [Recovered/Resolved]
  - Uterine prolapse [Not Recovered/Not Resolved]
  - Dry throat [Recovered/Resolved]

NARRATIVE: CASE EVENT DATE: 201806
